FAERS Safety Report 4361174-4 (Version None)
Quarter: 2004Q2

REPORT INFORMATION
  Report Type: 
  Country: None (occurrence: None)
  Receive Date: 20040507
  Receipt Date: 20030509
  Transmission Date: 20050107
  Serious: Yes (Hospitalization, Other)
  Sender: FDA-Public Use
  Company Number: PHEH2003US03453

PATIENT
  Age: 7 Year
  Sex: Male

DRUGS (1)
  1. TEGRETOL [Suspect]
     Indication: CONVULSION
     Dosage: 200 MG, BID, ORAL
     Route: 048
     Dates: start: 20030326, end: 20030416

REACTIONS (11)
  - ALANINE AMINOTRANSFERASE INCREASED [None]
  - ASPARTATE AMINOTRANSFERASE INCREASED [None]
  - ERYTHEMA MULTIFORME [None]
  - EYE REDNESS [None]
  - LETHARGY [None]
  - LEUKOPENIA [None]
  - LIP DRY [None]
  - MALAISE [None]
  - PYREXIA [None]
  - RASH GENERALISED [None]
  - VOMITING [None]
